FAERS Safety Report 23481079 (Version 1)
Quarter: 2024Q1

REPORT INFORMATION
  Report Type: Spontaneous
  Country: US (occurrence: US)
  Receive Date: 20240205
  Receipt Date: 20240205
  Transmission Date: 20240409
  Serious: Yes (Death, Other)
  Sender: FDA-Public Use
  Company Number: US-OPELLA-2024OHG003270

PATIENT
  Sex: Male

DRUGS (1)
  1. TALC [Suspect]
     Active Substance: TALC
     Indication: Product used for unknown indication

REACTIONS (4)
  - Mesothelioma malignant [Fatal]
  - Exposure to chemical pollution [Fatal]
  - Lung disorder [Fatal]
  - Injury [Unknown]
